FAERS Safety Report 4312805-6 (Version None)
Quarter: 2004Q1

REPORT INFORMATION
  Report Type: 
  Country: None (occurrence: None)
  Receive Date: 20040304
  Receipt Date: 20040219
  Transmission Date: 20041129
  Serious: Yes (Hospitalization)
  Sender: FDA-Public Use
  Company Number: 2002-04608

PATIENT
  Age: 35 Year
  Sex: Female
  Weight: 38 kg

DRUGS (13)
  1. VIREAD [Suspect]
     Indication: HIV INFECTION
     Dosage: 300 MG QD PO
     Route: 048
     Dates: start: 20010629, end: 20020426
  2. KALETRA [Concomitant]
  3. ZIAGEN [Concomitant]
  4. AVLOARDYL [Concomitant]
  5. LOPERAMIDE HCL [Concomitant]
  6. XANAX [Concomitant]
  7. ATHYMIL [Concomitant]
  8. MAGNESIUM [Concomitant]
  9. AMMONIUM MOLIBDATE [Concomitant]
  10. CLINOMEL PERFUSION [Concomitant]
  11. KALEORID [Concomitant]
  12. TARDYFERON [Concomitant]
  13. SODIUM CHLORIDE INJ [Concomitant]

REACTIONS (5)
  - DEHYDRATION [None]
  - FANCONI SYNDROME ACQUIRED [None]
  - NEPHROPATHY TOXIC [None]
  - RENAL FAILURE ACUTE [None]
  - WEIGHT DECREASED [None]
